FAERS Safety Report 7018658-X (Version None)
Quarter: 2010Q3

REPORT INFORMATION
  Report Type: 
  Country: None (occurrence: None)
  Receive Date: 20100928
  Receipt Date: 20100920
  Transmission Date: 20110219
  Serious: Yes (Hospitalization, Other)
  Sender: FDA-Public Use
  Company Number: CO-WYE-H17639110

PATIENT
  Sex: Male

DRUGS (7)
  1. RAPAMUNE [Suspect]
     Indication: PROPHYLAXIS AGAINST TRANSPLANT REJECTION
     Route: 048
     Dates: start: 20070101, end: 20100710
  2. MYCOPHENOLATE MOFETIL [Concomitant]
     Indication: PROPHYLAXIS AGAINST TRANSPLANT REJECTION
     Dates: start: 20080208, end: 20100810
  3. FOLIC ACID [Concomitant]
     Dosage: DOSE NOT PROVIDED, GIVEN DAILY
     Dates: start: 20070101
  4. PREDNISOLONE [Concomitant]
     Indication: PROPHYLAXIS AGAINST TRANSPLANT REJECTION
     Dates: start: 20080208
  5. AMLODIPINE [Concomitant]
     Indication: HYPERTENSION
     Dates: start: 20100501
  6. LOVASTATIN [Concomitant]
     Indication: BLOOD CHOLESTEROL INCREASED
  7. LOVASTATIN [Concomitant]
     Indication: BLOOD TRIGLYCERIDES INCREASED

REACTIONS (5)
  - BLOOD CREATININE INCREASED [None]
  - NEPHROTIC SYNDROME [None]
  - OBSTRUCTION [None]
  - RENAL DISORDER [None]
  - THROMBOSIS [None]
